FAERS Safety Report 7357836-7 (Version None)
Quarter: 2011Q1

REPORT INFORMATION
  Report Type: 
  Country: None (occurrence: None)
  Receive Date: 20110314
  Receipt Date: 20110314
  Transmission Date: 20110831
  Serious: No
  Sender: FDA-Public Use
  Company Number: None

PATIENT
  Age: 64 Year
  Sex: Male
  Weight: 63 kg

DRUGS (1)
  1. NAPROXEN [Suspect]
     Dosage: 375 MG BID PO
     Route: 048
     Dates: start: 20100303, end: 20110125

REACTIONS (1)
  - OESOPHAGITIS [None]
